FAERS Safety Report 21549743 (Version 2)
Quarter: 2023Q1

REPORT INFORMATION
  Report Type: Spontaneous
  Country: US (occurrence: US)
  Receive Date: 20221103
  Receipt Date: 20230309
  Transmission Date: 20230418
  Serious: No
  Sender: FDA-Public Use
  Company Number: US-MYOVANT SCIENCES GMBH-2022MYSCI0700656

PATIENT
  Age: 78 Year
  Sex: Male

DRUGS (9)
  1. ORGOVYX [Suspect]
     Active Substance: RELUGOLIX
     Indication: Prostate cancer
     Dosage: 360 MILLIGRAM, ONE TIME DOSE
     Route: 048
     Dates: start: 202207, end: 202207
  2. ORGOVYX [Suspect]
     Active Substance: RELUGOLIX
     Dosage: 120 MILLIGRAM, QD
     Route: 048
     Dates: start: 20220729
  3. ORGOVYX [Suspect]
     Active Substance: RELUGOLIX
     Dosage: UNK
     Route: 065
  4. ERLEADA [Suspect]
     Active Substance: APALUTAMIDE
     Indication: Prostate cancer
     Dosage: 240 MILLIGRAM, QD AM
     Route: 048
     Dates: start: 202208
  5. COAL TAR [Concomitant]
     Active Substance: COAL TAR
     Indication: Psoriasis
     Dosage: UNK, BID ON AFFECTED AREAS
     Route: 065
  6. VITAMIN D                          /00107901/ [Concomitant]
     Indication: Supplementation therapy
     Dosage: UNK
     Route: 065
  7. VITAMIN C [Concomitant]
     Active Substance: ASCORBIC ACID
     Indication: Supplementation therapy
     Dosage: UNK
     Route: 065
  8. ZOLPIDEM [Concomitant]
     Active Substance: ZOLPIDEM TARTRATE
     Indication: Insomnia
     Dosage: 5 MILLIGRAM, PRN
     Route: 065
  9. CANNABIDIOL [Concomitant]
     Active Substance: CANNABIDIOL
     Indication: Insomnia
     Dosage: UNK, PRN
     Route: 065

REACTIONS (9)
  - Skin discolouration [Not Recovered/Not Resolved]
  - Pruritus [Not Recovered/Not Resolved]
  - Hormone level abnormal [Unknown]
  - Emotional disorder [Unknown]
  - Rash [Recovering/Resolving]
  - Fatigue [Unknown]
  - Hot flush [Recovering/Resolving]
  - Psoriasis [Not Recovered/Not Resolved]
  - Incorrect dosage administered [Not Recovered/Not Resolved]

NARRATIVE: CASE EVENT DATE: 20220801
